FAERS Safety Report 6397532-6 (Version None)
Quarter: 2009Q3

REPORT INFORMATION
  Report Type: 
  Country: None (occurrence: None)
  Receive Date: 20090929
  Receipt Date: 20090917
  Transmission Date: 20100115
  Serious: Yes (Hospitalization)
  Sender: FDA-Public Use
  Company Number: 2009020666

PATIENT
  Sex: Male
  Weight: 30.391 kg

DRUGS (4)
  1. ALBUMINAR 25% [Suspect]
     Indication: LYMPHANGIOMA
     Dosage: 50 ML, 50 ML WEEKLY INTRAVENOUS
     Route: 042
  2. CARIMUNE NF [Suspect]
     Indication: LYMPHANGIOMA
     Dosage: 18 GRAMS EVERY 3 WEEKS INTRAVENOUS
     Route: 042
     Dates: start: 20090713, end: 20090728
  3. CARIMUNE NF [Suspect]
  4. TPN (TPN) [Concomitant]

REACTIONS (2)
  - KLEBSIELLA INFECTION [None]
  - KLEBSIELLA SEPSIS [None]
